FAERS Safety Report 8932563 (Version 1)
Quarter: 2012Q4

REPORT INFORMATION
  Report Type: Spontaneous
  Country: US (occurrence: None)
  Receive Date: 20121119
  Receipt Date: 20121119
  Transmission Date: 20130627
  Serious: Yes (Death)
  Sender: FDA-Public Use
  Company Number: TPA2012A08953

PATIENT
  Age: 76 Year
  Sex: Male
  Weight: 90.72 kg

DRUGS (2)
  1. ACTOPLUS [Suspect]
  2. ACTOS (PIOGLITAZONE HYDROCHLORIDE) [Suspect]
     Indication: TYPE 2 DIABETES MELLITUS

REACTIONS (3)
  - Fatigue [None]
  - Malaise [None]
  - Hepatic cancer [None]
